FAERS Safety Report 7473159-X (Version None)
Quarter: 2011Q2

REPORT INFORMATION
  Report Type: 
  Country: None (occurrence: None)
  Receive Date: 20110511
  Receipt Date: 20110429
  Transmission Date: 20111010
  Serious: Yes (Death, Hospitalization)
  Sender: FDA-Public Use
  Company Number: A0853115A

PATIENT
  Sex: Female

DRUGS (1)
  1. AVANDIA [Suspect]
     Indication: DIABETES MELLITUS
     Route: 048
     Dates: end: 20060401

REACTIONS (8)
  - HEART INJURY [None]
  - CARDIOMYOPATHY [None]
  - DIABETES MELLITUS INADEQUATE CONTROL [None]
  - CARDIAC FAILURE CONGESTIVE [None]
  - GENERALISED OEDEMA [None]
  - ATRIOVENTRICULAR BLOCK COMPLETE [None]
  - DEATH [None]
  - CORONARY ARTERY DISEASE [None]
